FAERS Safety Report 5985943-X (Version None)
Quarter: 2008Q4

REPORT INFORMATION
  Report Type: 
  Country: None (occurrence: None)
  Receive Date: 20081205
  Receipt Date: 20081205
  Transmission Date: 20090506
  Serious: Yes (Hospitalization)
  Sender: FDA-Public Use
  Company Number: None

PATIENT
  Age: 52 Year
  Sex: Female
  Weight: 72.5755 kg

DRUGS (1)
  1. LAMOTRIGINE [Suspect]
     Indication: DEPRESSION
     Dosage: 1-4 TABS TITRATE WEEKLY DAILY PO
     Route: 048
     Dates: start: 20081101, end: 20081128

REACTIONS (2)
  - RASH [None]
  - SCAR [None]
